FAERS Safety Report 4442188-2 (Version None)
Quarter: 2004Q3

REPORT INFORMATION
  Report Type: 
  Country: None (occurrence: None)
  Receive Date: 20040901
  Receipt Date: 20040820
  Transmission Date: 20050211
  Serious: Yes (Other)
  Sender: FDA-Public Use
  Company Number: FR-SHR-03-017432

PATIENT
  Age: 33 Year
  Sex: Female
  Weight: 63 kg

DRUGS (2)
  1. MIRENA [Suspect]
     Indication: CONTRACEPTION
     Dosage: 20 UG, CONT, INTRA-UTERINE
     Route: 015
     Dates: start: 19990312
  2. CORTICOSTEROIDS [Concomitant]

REACTIONS (7)
  - AMENORRHOEA [None]
  - CAESAREAN SECTION [None]
  - DRUG EXPOSURE DURING PREGNANCY [None]
  - METRORRHAGIA [None]
  - PRE-ECLAMPSIA [None]
  - PREGNANCY WITH CONTRACEPTIVE DEVICE [None]
  - UNINTENDED PREGNANCY [None]
